FAERS Safety Report 5152286-6 (Version None)
Quarter: 2006Q4

REPORT INFORMATION
  Report Type: 
  Country: None (occurrence: None)
  Receive Date: 20061109
  Receipt Date: 20061026
  Transmission Date: 20070319
  Serious: Yes (Hospitalization)
  Sender: FDA-Public Use
  Company Number: 2006BI013710

PATIENT
  Age: 43 Year
  Sex: Male

DRUGS (9)
  1. AVONEX [Suspect]
     Indication: RELAPSING-REMITTING MULTIPLE SCLEROSIS
     Dosage: 30 UG QW; IM
     Route: 030
     Dates: start: 20050515
  2. LACTULOSE [Concomitant]
  3. WARFARIN SODIUM [Concomitant]
  4. ALLOPURINOL [Concomitant]
  5. ELAVIL [Concomitant]
  6. VASOTEC [Concomitant]
  7. ENOXAPARIN SODIUM [Concomitant]
  8. CIPRO [Concomitant]
  9. AMITRIPTYLINE HCL [Concomitant]

REACTIONS (7)
  - ACCIDENT [None]
  - HILAR LYMPHADENOPATHY [None]
  - INFLUENZA LIKE ILLNESS [None]
  - LOWER LIMB FRACTURE [None]
  - LYMPHADENOPATHY MEDIASTINAL [None]
  - POST PROCEDURAL COMPLICATION [None]
  - PULMONARY EMBOLISM [None]
